FAERS Safety Report 14790114 (Version 1)
Quarter: 2018Q2

REPORT INFORMATION
  Report Type: Report from Study
  Country: US (occurrence: US)
  Receive Date: 20180423
  Receipt Date: 20180423
  Transmission Date: 20180711
  Serious: Yes (Hospitalization)
  Sender: FDA-Public Use
  Company Number: US-ROCHE-2105839

PATIENT
  Age: 49 Year
  Sex: Female
  Weight: 44.9 kg

DRUGS (2)
  1. ATEZOLIZUMAB. [Suspect]
     Active Substance: ATEZOLIZUMAB
     Indication: RENAL CELL CARCINOMA
     Dosage: MOST RECENT DOSE OF ATEZOLIZUMAB ON 15/MAR/2018 (18 CYCLES)
     Route: 042
     Dates: start: 20170314
  2. BEVACIZUMAB. [Suspect]
     Active Substance: BEVACIZUMAB
     Indication: RENAL CELL CARCINOMA
     Dosage: MOST RECENT DOSE OF BEVACIZUMAB ON 15/MAR/2018 (18 CYCLES)
     Route: 042
     Dates: start: 20170314

REACTIONS (5)
  - Leukopenia [Unknown]
  - Mucous membrane disorder [Unknown]
  - Diarrhoea [Unknown]
  - Haematochezia [Unknown]
  - Abdominal pain [Unknown]

NARRATIVE: CASE EVENT DATE: 20180409
